FAERS Safety Report 14153333 (Version 3)
Quarter: 2018Q3

REPORT INFORMATION
  Report Type: Spontaneous
  Country: US (occurrence: US)
  Receive Date: 20171102
  Receipt Date: 20180710
  Transmission Date: 20181010
  Serious: No
  Sender: FDA-Public Use
  Company Number: US-SA-2017SA165675

PATIENT
  Age: 73 Year
  Sex: Male

DRUGS (1)
  1. PRALUENT [Suspect]
     Active Substance: ALIROCUMAB
     Indication: HYPERLIPIDAEMIA
     Dosage: 75 MG,QOW
     Route: 058
     Dates: start: 201605

REACTIONS (4)
  - Diarrhoea [Unknown]
  - Myalgia [Unknown]
  - Muscle spasms [Unknown]
  - Back pain [Unknown]
